FAERS Safety Report 9850615 (Version 1)
Quarter: 2013Q4

REPORT INFORMATION
  Report Type: Spontaneous
  Country: US (occurrence: None)
  Receive Date: 20131127
  Receipt Date: 20131127
  Transmission Date: 20140711
  Serious: No
  Sender: FDA-Public Use
  Company Number: 224236LEO

PATIENT
  Sex: Female

DRUGS (1)
  1. PICATO [Suspect]
     Indication: ACTINIC KERATOSIS
     Route: 061
     Dates: start: 20131004, end: 20131006

REACTIONS (5)
  - Medication error [None]
  - Drug administration error [None]
  - Drug administered at inappropriate site [None]
  - Product quality issue [None]
  - Product packaging quantity issue [None]
